FAERS Safety Report 4941621-7 (Version None)
Quarter: 2006Q1

REPORT INFORMATION
  Report Type: 
  Country: None (occurrence: None)
  Receive Date: 20060307
  Receipt Date: 20060228
  Transmission Date: 20060701
  Serious: Yes (Disabling, Other)
  Sender: FDA-Public Use
  Company Number: USA-2005-0020842

PATIENT
  Age: 55 Year
  Sex: Female

DRUGS (29)
  1. OXYCONTIN [Suspect]
     Indication: PAIN
     Dosage: 10, BID,
  2. FOSAMAX [Concomitant]
  3. XANAX [Concomitant]
  4. ZOLOFT [Concomitant]
  5. ZYRTEC [Concomitant]
  6. KCL TAB [Concomitant]
  7. PREDNISONE TAB [Concomitant]
  8. DEMADEX [Concomitant]
  9. LITHOBID [Concomitant]
  10. RESTORIL [Concomitant]
  11. METROGEL [Concomitant]
  12. FLOVENT [Concomitant]
  13. SEREVENT [Concomitant]
  14. SEROQUEL [Concomitant]
  15. PREVACID [Concomitant]
  16. MYSOLINE [Concomitant]
  17. SINGULAIRE (MONTELUKAST SODIUM) [Concomitant]
  18. LIPITOR [Concomitant]
  19. MIACALCIN [Concomitant]
  20. GUAIFENESIN [Concomitant]
  21. ALBUTEROL [Concomitant]
  22. ADVAIR DISKUS (FLUTICASONE PROPIONATE) [Concomitant]
  23. LACTULOSE [Concomitant]
  24. TEMAZEPAM [Concomitant]
  25. DILADEX [Concomitant]
  26. BECONASE AQUEOUS (BECLOMETASONE DIPROPIONATE) [Concomitant]
  27. LEVAQUIN [Concomitant]
  28. CITRUCEL (METHYLCELLULOSE) [Concomitant]
  29. ZOCOR [Concomitant]

REACTIONS (49)
  - ABDOMINAL DISTENSION [None]
  - ABDOMINAL PAIN [None]
  - ANHEDONIA [None]
  - ANXIETY [None]
  - ASTHENIA [None]
  - BIPOLAR DISORDER [None]
  - BRONCHIAL HYPERACTIVITY [None]
  - BRONCHITIS ACUTE [None]
  - CHEST DISCOMFORT [None]
  - CHRONIC SINUSITIS [None]
  - COLD SWEAT [None]
  - CRYING [None]
  - DEAFNESS [None]
  - DELUSIONAL DISORDER, UNSPECIFIED TYPE [None]
  - DEPRESSED MOOD [None]
  - DEPRESSION [None]
  - DIFFICULTY IN WALKING [None]
  - DISTURBANCE IN ATTENTION [None]
  - DRUG DEPENDENCE [None]
  - DRUG TOLERANCE [None]
  - DRUG WITHDRAWAL SYNDROME [None]
  - DYSPEPSIA [None]
  - DYSPHAGIA [None]
  - DYSPNOEA [None]
  - DYSPNOEA EXERTIONAL [None]
  - EAR PAIN [None]
  - FATIGUE [None]
  - FEELING OF DESPAIR [None]
  - GASTROOESOPHAGEAL REFLUX DISEASE [None]
  - INCREASED UPPER AIRWAY SECRETION [None]
  - INSOMNIA [None]
  - NASAL CONGESTION [None]
  - NIGHTMARE [None]
  - NON-CARDIAC CHEST PAIN [None]
  - OBSESSIVE-COMPULSIVE DISORDER [None]
  - OEDEMA PERIPHERAL [None]
  - OSTEOPOROSIS [None]
  - OTITIS MEDIA [None]
  - PAIN [None]
  - PALPITATIONS [None]
  - PARANOIA [None]
  - POST PROCEDURAL COMPLICATION [None]
  - POSTOPERATIVE CONSTIPATION [None]
  - PROCEDURAL PAIN [None]
  - SELF ESTEEM DECREASED [None]
  - SLEEP DISORDER [None]
  - TEARFULNESS [None]
  - TYMPANIC MEMBRANE PERFORATION [None]
  - UPPER RESPIRATORY TRACT INFECTION [None]
